FAERS Safety Report 18403086 (Version 5)
Quarter: 2021Q1

REPORT INFORMATION
  Report Type: Spontaneous
  Country: JP (occurrence: JP)
  Receive Date: 20201019
  Receipt Date: 20210329
  Transmission Date: 20210419
  Serious: Yes (Hospitalization, Other)
  Sender: FDA-Public Use
  Company Number: NVSJ2020JP010359

PATIENT
  Age: 70 Year
  Sex: Female
  Weight: 42 kg

DRUGS (10)
  1. ENTRESTO [Suspect]
     Active Substance: SACUBITRIL\VALSARTAN
     Dosage: 200 MG, BID
     Route: 048
     Dates: start: 20201020
  2. THYRADIN S [Concomitant]
     Active Substance: LEVOTHYROXINE SODIUM
     Indication: CARDIAC FAILURE CHRONIC
     Dosage: 50 MG, QD
     Route: 048
     Dates: start: 20201020
  3. NIFEDIPINE. [Concomitant]
     Active Substance: NIFEDIPINE
     Indication: CARDIAC FAILURE CHRONIC
     Dosage: 40 MG, QD
     Route: 048
     Dates: start: 20200902
  4. SAMSCA [Concomitant]
     Active Substance: TOLVAPTAN
     Indication: CARDIAC FAILURE CHRONIC
     Dosage: 15 MG, QD
     Route: 048
     Dates: start: 20201208
  5. FIBLAST [Concomitant]
     Indication: DECUBITUS ULCER
     Dosage: 1 PUSH
     Route: 062
     Dates: start: 20200902, end: 20201023
  6. FORXIGA [Concomitant]
     Active Substance: DAPAGLIFLOZIN
     Indication: CARDIAC FAILURE CHRONIC
     Dosage: 10 MG, QD
     Route: 048
     Dates: start: 20201208
  7. ENTRESTO [Suspect]
     Active Substance: SACUBITRIL\VALSARTAN
     Indication: CARDIAC FAILURE CHRONIC
     Dosage: 100 MG
     Route: 048
     Dates: start: 20200915, end: 20201006
  8. FUROSEMIDE. [Concomitant]
     Active Substance: FUROSEMIDE
     Indication: CARDIAC FAILURE CHRONIC
     Dosage: 40 MG, QD
     Route: 048
     Dates: start: 20200902
  9. FEBURIC [Concomitant]
     Active Substance: FEBUXOSTAT
     Indication: CARDIAC FAILURE CHRONIC
     Dosage: 10 MG, QD
     Route: 048
     Dates: start: 20200902
  10. MIYA?BM [Concomitant]
     Active Substance: CLOSTRIDIUM BUTYRICUM SPORES STRAIN M-55
     Indication: DIARRHOEA
     Dosage: 0.5 MG, TID
     Route: 048
     Dates: start: 20200902, end: 20201023

REACTIONS (10)
  - Weight increased [Recovering/Resolving]
  - Dyspnoea [Unknown]
  - Hypothyroidism [Recovering/Resolving]
  - Lip oedema [Recovering/Resolving]
  - Face oedema [Recovering/Resolving]
  - Oedema peripheral [Recovering/Resolving]
  - Peripheral swelling [Unknown]
  - Cardiac failure acute [Recovering/Resolving]
  - Localised oedema [Recovering/Resolving]
  - Swelling face [Unknown]

NARRATIVE: CASE EVENT DATE: 2020
